FAERS Safety Report 5362785-X (Version None)
Quarter: 2007Q2

REPORT INFORMATION
  Report Type: 
  Country: None (occurrence: None)
  Receive Date: 20070614
  Receipt Date: 20070604
  Transmission Date: 20071010
  Serious: Yes (Other)
  Sender: FDA-Public Use
  Company Number: 100#08#2007-02027

PATIENT
  Age: 62 Year
  Sex: Male

DRUGS (1)
  1. SERTRALINE [Suspect]
     Indication: DRUG USE FOR UNKNOWN INDICATION

REACTIONS (1)
  - TOXIC EPIDERMAL NECROLYSIS [None]
